FAERS Safety Report 9069545 (Version 1)
Quarter: 2013Q1

REPORT INFORMATION
  Report Type: Spontaneous
  Country: DK (occurrence: FR)
  Receive Date: 20130131
  Receipt Date: 20130131
  Transmission Date: 20140127
  Serious: Yes (Other)
  Sender: FDA-Public Use
  Company Number: FR-FRI-1000042322

PATIENT
  Age: 35 Year
  Sex: Female

DRUGS (4)
  1. ESCITALOPRAM [Suspect]
     Indication: DEPRESSION
     Dosage: 15 MG
     Route: 048
     Dates: start: 201102
  2. ESCITALOPRAM [Suspect]
     Dosage: 15 MG
     Route: 048
     Dates: start: 201208
  3. ZOLPIDEM [Suspect]
     Indication: INSOMNIA
     Dosage: 1 DF
     Route: 048
     Dates: start: 20121219, end: 20121219
  4. ALPRAZOLAM [Suspect]
     Indication: PRODUCT USED FOR UNKNOWN INDICATION
     Dosage: 0.25 MG BID OR TID
     Route: 048
     Dates: start: 201211

REACTIONS (3)
  - Anterograde amnesia [Recovered/Resolved]
  - Abnormal behaviour [Recovered/Resolved]
  - Drug dispensing error [Recovered/Resolved]
